FAERS Safety Report 21382374 (Version 1)
Quarter: 2022Q3

REPORT INFORMATION
  Report Type: Other
  Country: CN (occurrence: None)
  Receive Date: 20220927
  Receipt Date: 20220927
  Transmission Date: 20221027
  Serious: Yes (Other)
  Sender: FDA-Public Use
  Company Number: CN-ROCHE-3182882

PATIENT
  Age: 26 Year
  Sex: Male

DRUGS (3)
  1. ALECTINIB [Suspect]
     Active Substance: ALECTINIB
     Indication: Small cell lung cancer
     Route: 065
  2. ENSARTINIB [Concomitant]
     Active Substance: ENSARTINIB
     Indication: Small cell lung cancer
  3. CATEQUENTINIB [Concomitant]
     Active Substance: CATEQUENTINIB
     Indication: Small cell lung cancer

REACTIONS (5)
  - Metastasis [Unknown]
  - Disease progression [Unknown]
  - Central nervous system lesion [Unknown]
  - Drug resistance [Unknown]
  - Drug ineffective [Unknown]
